FAERS Safety Report 12431978 (Version 1)
Quarter: 2016Q2

REPORT INFORMATION
  Report Type: Spontaneous
  Country: US (occurrence: US)
  Receive Date: 20160603
  Receipt Date: 20160603
  Transmission Date: 20160815
  Serious: No
  Sender: FDA-Public Use
  Company Number: US-BIOGEN-2016BI00237400

PATIENT
  Sex: Female

DRUGS (1)
  1. PLEGRIDY [Suspect]
     Active Substance: PEGINTERFERON BETA-1A
     Indication: MULTIPLE SCLEROSIS
     Route: 065
     Dates: start: 20151204

REACTIONS (12)
  - Malaise [Unknown]
  - Amnesia [Unknown]
  - Lymph node pain [Unknown]
  - Head discomfort [Unknown]
  - Injection site reaction [Unknown]
  - Musculoskeletal stiffness [Unknown]
  - Headache [Unknown]
  - Chills [Unknown]
  - Nausea [Unknown]
  - Vertigo [Unknown]
  - Pyrexia [Unknown]
  - Muscle spasms [Unknown]
